FAERS Safety Report 8236469-4 (Version None)
Quarter: 2012Q1

REPORT INFORMATION
  Report Type: 
  Country: None (occurrence: None)
  Receive Date: 20120327
  Receipt Date: 20120319
  Transmission Date: 20120608
  Serious: Yes (Congenital Anomaly)
  Sender: FDA-Public Use
  Company Number: US-US-EMD SERONO, INC.-7120545

PATIENT

DRUGS (2)
  1. REBIF [Suspect]
     Route: 064
  2. REBIF [Suspect]
     Route: 064

REACTIONS (3)
  - TRISOMY 21 [None]
  - HEART DISEASE CONGENITAL [None]
  - FOETAL EXPOSURE DURING PREGNANCY [None]
